FAERS Safety Report 9730783 (Version 3)
Quarter: 2014Q2

REPORT INFORMATION
  Report Type: Spontaneous
  Country: US (occurrence: US)
  Receive Date: 20131202
  Receipt Date: 20140606
  Transmission Date: 20141212
  Serious: Yes (Death, Hospitalization, Other)
  Sender: FDA-Public Use
  Company Number: US-B.I. PHARMACEUTICALS,INC./RIDGEFIELD-2013-BI-39937BP

PATIENT
  Age: 56 Year
  Sex: Male
  Weight: 108.86 kg

DRUGS (7)
  1. PRADAXA [Suspect]
     Indication: ANTICOAGULANT THERAPY
     Route: 065
     Dates: start: 20111220, end: 20120622
  2. PRADAXA [Suspect]
     Indication: ATRIAL FIBRILLATION
  3. BISOPROLOL [Concomitant]
     Route: 065
     Dates: start: 201112, end: 201206
  4. DIGOXIN [Concomitant]
     Route: 065
     Dates: start: 201112, end: 201206
  5. LISINOPRIL [Concomitant]
     Route: 065
     Dates: start: 201112, end: 201206
  6. ROBAXIN [Concomitant]
     Route: 065
  7. SIMVASTATIN [Concomitant]
     Route: 065
     Dates: start: 201112, end: 201206

REACTIONS (6)
  - Renal haemorrhage [Fatal]
  - Haematoma [Unknown]
  - Road traffic accident [Unknown]
  - Pelvic fracture [Unknown]
  - Arterial injury [Unknown]
  - Renal failure [Unknown]
